FAERS Safety Report 7773097-9 (Version None)
Quarter: 2011Q3

REPORT INFORMATION
  Report Type: 
  Country: None (occurrence: None)
  Receive Date: 20110922
  Receipt Date: 20100412
  Transmission Date: 20111222
  Serious: No
  Sender: FDA-Public Use
  Company Number: US-ASTRAZENECA-2010SE46446

PATIENT
  Age: 43 Year
  Sex: Female

DRUGS (12)
  1. TRICOR [Concomitant]
     Dosage: 160 MG
     Dates: start: 20050202
  2. PHENARGAN [Concomitant]
     Dates: start: 20060427
  3. NEXIUM [Concomitant]
     Dates: start: 20060427
  4. ALBUTEROL [Concomitant]
     Dosage: 90 MCG
     Dates: start: 20050426
  5. SEROQUEL [Suspect]
     Dosage: 300-750 MG
     Route: 048
     Dates: start: 20050118
  6. PREVACID [Concomitant]
     Dosage: 30 MG
     Dates: start: 20050118
  7. ZOCOR [Concomitant]
     Dosage: 40 MG
     Dates: start: 20050216
  8. HYDROXYZINE PAM [Concomitant]
     Dosage: 25-50 MG
     Dates: start: 20050202
  9. MECLIZINE [Concomitant]
     Dosage: 25 MG
     Dates: start: 20050216
  10. MEVACOR [Concomitant]
     Dosage: 4 MG QHS
     Dates: start: 20060427
  11. ATENOLOL [Concomitant]
     Dosage: 50 MG
     Dates: start: 20050202
  12. VALIUM [Concomitant]
     Dosage: 5 MG
     Dates: start: 20050329

REACTIONS (6)
  - HYPERTENSION [None]
  - MUSCLE SPASMS [None]
  - DIABETES MELLITUS [None]
  - BACK PAIN [None]
  - HYPERLIPIDAEMIA [None]
  - CORONARY ARTERY DISEASE [None]
